FAERS Safety Report 10548946 (Version 1)
Quarter: 2014Q4

REPORT INFORMATION
  Report Type: Spontaneous
  Country: GR (occurrence: GR)
  Receive Date: 20141028
  Receipt Date: 20141028
  Transmission Date: 20150529
  Serious: Yes (Hospitalization)
  Sender: FDA-Public Use
  Company Number: GR-MYLANLABS-2014M1008446

PATIENT

DRUGS (1)
  1. LITHIUM [Suspect]
     Active Substance: LITHIUM CARBONATE
     Indication: BIPOLAR I DISORDER
     Dosage: 660 MG, QD
     Route: 065

REACTIONS (5)
  - Toxicity to various agents [Recovered/Resolved]
  - Cystitis glandularis [Recovered/Resolved]
  - Hydronephrosis [Recovered/Resolved]
  - Antipsychotic drug level increased [None]
  - Renal impairment [Recovered/Resolved]
